FAERS Safety Report 4765615-X (Version None)
Quarter: 2005Q3

REPORT INFORMATION
  Report Type: 
  Country: None (occurrence: None)
  Receive Date: 20050906
  Receipt Date: 20050818
  Transmission Date: 20060218
  Serious: Yes (Death, Other)
  Sender: FDA-Public Use
  Company Number: JP_050807398

PATIENT
  Age: 69 Year
  Sex: Female
  Weight: 45 kg

DRUGS (5)
  1. VINBLASTINE SULFATE [Suspect]
     Indication: BLADDER CANCER RECURRENT
     Dates: start: 20010730
  2. VINBLASTINE SULFATE [Suspect]
     Indication: PROPHYLAXIS
     Dates: start: 20010730
  3. ADRIAMYCIN PFS [Concomitant]
  4. CISPLATIN [Concomitant]
  5. METHOTREXATE [Concomitant]

REACTIONS (19)
  - ABSCESS [None]
  - ABSCESS NECK [None]
  - ANAEMIA [None]
  - BACK PAIN [None]
  - CATHETER SITE ERYTHEMA [None]
  - CATHETER SITE PAIN [None]
  - CHEST DISCOMFORT [None]
  - DEFORMITY [None]
  - HYPOAESTHESIA [None]
  - METASTASES TO BONE [None]
  - METASTASES TO KIDNEY [None]
  - METASTASES TO LIVER [None]
  - METASTASES TO LUNG [None]
  - METASTASES TO LYMPH NODES [None]
  - MUSCLE RIGIDITY [None]
  - SENSORY DISTURBANCE [None]
  - SPONDYLITIS [None]
  - STAPHYLOCOCCAL INFECTION [None]
  - URINARY RETENTION [None]
